FAERS Safety Report 4411303-9 (Version None)
Quarter: 2004Q3

REPORT INFORMATION
  Report Type: 
  Country: None (occurrence: None)
  Receive Date: 20040727
  Receipt Date: 20040712
  Transmission Date: 20050211
  Serious: Yes (Life-Threatening, Hospitalization, Other)
  Sender: FDA-Public Use
  Company Number: CO-2004-028598

PATIENT
  Age: 53 Year
  Sex: Male

DRUGS (1)
  1. BETAFERON (INTERFERON BETA - 1B) INJECTION, 250UG [Suspect]
     Indication: MULTIPLE SCLEROSIS
     Dosage: 8 MIU, EVERY 2D, SUBCUTANEOUS
     Route: 058
     Dates: start: 20030901, end: 20040601

REACTIONS (4)
  - CEREBRAL HAEMATOMA [None]
  - COMA [None]
  - HAEMATOCRIT DECREASED [None]
  - IDIOPATHIC THROMBOCYTOPENIC PURPURA [None]
